FAERS Safety Report 6939924-X (Version None)
Quarter: 2010Q3

REPORT INFORMATION
  Report Type: 
  Country: None (occurrence: None)
  Receive Date: 20100825
  Receipt Date: 20100812
  Transmission Date: 20110219
  Serious: Yes (Other)
  Sender: FDA-Public Use
  Company Number: US-PFIZER INC-2010102165

PATIENT
  Sex: Male

DRUGS (3)
  1. NEURONTIN [Suspect]
     Indication: DEPRESSION
     Dosage: 50 MG, 1X/DAY
  2. NEURONTIN [Suspect]
     Indication: ANXIETY
  3. REMERON [Suspect]

REACTIONS (2)
  - DEPRESSION [None]
  - SEDATION [None]
